FAERS Safety Report 16208363 (Version 1)
Quarter: 2019Q2

REPORT INFORMATION
  Report Type: Spontaneous
  Country: SE (occurrence: SE)
  Receive Date: 20190417
  Receipt Date: 20190417
  Transmission Date: 20190711
  Serious: Yes (Other)
  Sender: FDA-Public Use
  Company Number: SE-PFIZER INC-2019157146

PATIENT
  Age: 73 Year
  Sex: Female

DRUGS (1)
  1. OESTRING [Suspect]
     Active Substance: ESTRADIOL
     Dosage: UNK

REACTIONS (2)
  - Gastric ulcer [Not Recovered/Not Resolved]
  - Fungal infection [Not Recovered/Not Resolved]
